FAERS Safety Report 23544713 (Version 1)
Quarter: 2024Q1

REPORT INFORMATION
  Report Type: Spontaneous
  Country: US (occurrence: US)
  Receive Date: 20240220
  Receipt Date: 20240220
  Transmission Date: 20240409
  Serious: No
  Sender: FDA-Public Use
  Company Number: US-PFIZER INC-202400041927

PATIENT
  Age: 68 Year
  Sex: Male

DRUGS (19)
  1. XELJANZ XR [Suspect]
     Active Substance: TOFACITINIB CITRATE
     Dosage: 11 MG, DAILY
     Route: 048
     Dates: start: 2019
  2. HYDROCHLOROTHIAZIDE [Concomitant]
     Active Substance: HYDROCHLOROTHIAZIDE
  3. LOSARTAN [Concomitant]
     Active Substance: LOSARTAN
  4. METFORMIN [Concomitant]
     Active Substance: METFORMIN HYDROCHLORIDE
  5. CIPROFLOXACIN 0.3% AND DEXAMETHASONE 0.1% [Concomitant]
  6. CEFDINIR [Concomitant]
     Active Substance: CEFDINIR
  7. PANTOPRAZOLE [Concomitant]
     Active Substance: PANTOPRAZOLE
  8. PRAVASTATIN [Concomitant]
     Active Substance: PRAVASTATIN
  9. CLOPIDOGREL [Concomitant]
     Active Substance: CLOPIDOGREL BISULFATE
  10. PREDNISONE [Concomitant]
     Active Substance: PREDNISONE
  11. GABAPENTIN [Concomitant]
     Active Substance: GABAPENTIN
  12. FLUTICASONE PROPIONATE [Concomitant]
     Active Substance: FLUTICASONE PROPIONATE
  13. RANOLAZINE [Concomitant]
     Active Substance: RANOLAZINE
  14. ASPIRIN [Concomitant]
     Active Substance: ASPIRIN
  15. FISH OIL [Concomitant]
     Active Substance: FISH OIL
  16. IRON [Concomitant]
     Active Substance: IRON
  17. MONTELUKAST [Concomitant]
     Active Substance: MONTELUKAST SODIUM
  18. VITAMIN B12 [Concomitant]
     Active Substance: CYANOCOBALAMIN
  19. ZYRTEC [Concomitant]
     Active Substance: CETIRIZINE HYDROCHLORIDE

REACTIONS (1)
  - COVID-19 [Recovered/Resolved]

NARRATIVE: CASE EVENT DATE: 20231201
